FAERS Safety Report 21302284 (Version 1)
Quarter: 2022Q3

REPORT INFORMATION
  Report Type: Spontaneous
  Country: FR (occurrence: None)
  Receive Date: 20220907
  Receipt Date: 20220907
  Transmission Date: 20221027
  Serious: Yes (Other)
  Sender: FDA-Public Use
  Company Number: FR-Merck Healthcare KGaA-9348873

PATIENT
  Sex: Female

DRUGS (1)
  1. LEVOTHYROXINE [Suspect]
     Active Substance: LEVOTHYROXINE
     Indication: Product used for unknown indication
     Dosage: 100 UG
     Dates: start: 2017

REACTIONS (5)
  - Breast cyst [Unknown]
  - Infected cyst [Unknown]
  - Tooth pulp haemorrhage [Not Recovered/Not Resolved]
  - Peripheral swelling [Unknown]
  - Tachycardia [Unknown]
